FAERS Safety Report 4771388-7 (Version None)
Quarter: 2005Q3

REPORT INFORMATION
  Report Type: 
  Country: None (occurrence: None)
  Receive Date: 20050914
  Receipt Date: 20050902
  Transmission Date: 20060218
  Serious: Yes (Other)
  Sender: FDA-Public Use
  Company Number: 217464

PATIENT

DRUGS (1)
  1. XOLAIR [Suspect]

REACTIONS (1)
  - ULCERATIVE KERATITIS [None]
